FAERS Safety Report 9203545 (Version 1)
Quarter: 2013Q2

REPORT INFORMATION
  Report Type: Spontaneous
  Country: US (occurrence: US)
  Receive Date: 20130402
  Receipt Date: 20130402
  Transmission Date: 20140414
  Serious: No
  Sender: FDA-Public Use
  Company Number: US-PFIZER INC-2013103114

PATIENT
  Sex: Female

DRUGS (2)
  1. CELEBREX [Suspect]
     Indication: ARTHRITIS
     Dosage: 400 MG, 2X/DAY
     Route: 048
  2. CELEBREX [Suspect]
     Dosage: UNK, 2X/DAY
     Route: 048

REACTIONS (2)
  - Injury [Unknown]
  - Inflammation [Unknown]
